FAERS Safety Report 21282689 (Version 1)
Quarter: 2022Q3

REPORT INFORMATION
  Report Type: Spontaneous
  Country: US (occurrence: US)
  Receive Date: 20220901
  Receipt Date: 20220901
  Transmission Date: 20221027
  Serious: Yes (Hospitalization)
  Sender: FDA-Public Use
  Company Number: US-LUPIN PHARMACEUTICALS INC.-2022-10764

PATIENT
  Age: 77 Year
  Sex: Male

DRUGS (4)
  1. METHYLPREDNISOLONE [Suspect]
     Active Substance: METHYLPREDNISOLONE
     Indication: Pneumonitis
     Dosage: UNK
     Route: 065
  2. METHYLPREDNISOLONE [Suspect]
     Active Substance: METHYLPREDNISOLONE
     Dosage: 1 MILLIGRAM/KILOGRAM (DOSE INCREASED)
     Route: 065
  3. PREDNISONE [Suspect]
     Active Substance: PREDNISONE
     Indication: Pneumonitis
     Dosage: 60 MG, QD
     Route: 065
  4. PREDNISONE [Suspect]
     Active Substance: PREDNISONE
     Indication: Dermatitis

REACTIONS (1)
  - Drug resistance [Unknown]
